FAERS Safety Report 6252587-4 (Version None)
Quarter: 2009Q3

REPORT INFORMATION
  Report Type: 
  Country: None (occurrence: None)
  Receive Date: 20090701
  Receipt Date: 20090622
  Transmission Date: 20100115
  Serious: Yes (Hospitalization, Other)
  Sender: FDA-Public Use
  Company Number: US-ELI_LILLY_AND_COMPANY-US200906004988

PATIENT
  Age: 84 Year
  Sex: Female

DRUGS (14)
  1. FORTEO [Suspect]
     Dates: start: 20081101
  2. FORTEO [Suspect]
  3. CALCIUM                                 /N/A/ [Concomitant]
  4. VITAMINS NOS [Concomitant]
  5. COREG [Concomitant]
     Dosage: 25 MG, 2/D
  6. PLAQUENIL [Concomitant]
     Indication: ARTHRITIS
     Dosage: 200 MG, UNK
  7. CYMBALTA [Concomitant]
     Indication: NEUROLOGICAL SYMPTOM
     Dosage: 20 MG, 2/D
  8. BENICAR [Concomitant]
     Indication: BLOOD PRESSURE
     Dosage: 40 MG, DAILY (1/D)
  9. PROTONIX [Concomitant]
     Indication: HIATUS HERNIA
     Dosage: 40 MG, UNK
  10. MAXZIDE [Concomitant]
     Dosage: 5 MG, UNK
  11. XANAX [Concomitant]
     Dosage: 5 MG, AS NEEDED
  12. XANAX [Concomitant]
     Indication: SLEEP DISORDER
     Dosage: 7.5 MG, EACH EVENING
  13. ARANESP [Concomitant]
     Indication: BLOOD DISORDER
     Dosage: 200 MG, DAILY (1/D)
  14. LAXATIVES [Concomitant]

REACTIONS (14)
  - ASTHENIA [None]
  - BACK DISORDER [None]
  - COLD SWEAT [None]
  - CONTUSION [None]
  - DIZZINESS [None]
  - FALL [None]
  - LIMB INJURY [None]
  - NAUSEA [None]
  - PRESYNCOPE [None]
  - SPINAL FRACTURE [None]
  - TREMOR [None]
  - URINARY HESITATION [None]
  - URINE COLOUR ABNORMAL [None]
  - URINE ODOUR ABNORMAL [None]
